FAERS Safety Report 24052699 (Version 2)
Quarter: 2024Q3

REPORT INFORMATION
  Report Type: Spontaneous
  Country: US (occurrence: US)
  Receive Date: 20240705
  Receipt Date: 20240720
  Transmission Date: 20241017
  Serious: Yes (Other)
  Sender: TEVA
  Company Number: US-TEVA-VS-3212263

PATIENT
  Sex: Female

DRUGS (4)
  1. FLUOROURACIL [Suspect]
     Active Substance: FLUOROURACIL
     Indication: Adenosquamous cell carcinoma
     Dosage: RECEIVED 9 CYCLES
     Route: 065
  2. IRINOTECAN [Suspect]
     Active Substance: IRINOTECAN
     Indication: Adenosquamous cell carcinoma
     Dosage: RECEIVED 9 CYCLES,  INITIALLY REDUCED AND THEN WITHDRAWN
     Route: 065
  3. LEUCOVORIN [Suspect]
     Active Substance: LEUCOVORIN\LEUCOVORIN CALCIUM
     Indication: Pancreatic carcinoma
     Dosage: RECEIVED 9 CYCLES
     Route: 065
  4. OXALIPLATIN [Suspect]
     Active Substance: OXALIPLATIN
     Indication: Adenosquamous cell carcinoma
     Dosage: RECEIVED 9 CYCLES
     Route: 065

REACTIONS (3)
  - Steatohepatitis [Unknown]
  - Cognitive disorder [Unknown]
  - Fatigue [Unknown]
